FAERS Safety Report 24169833 (Version 2)
Quarter: 2024Q4

REPORT INFORMATION
  Report Type: Spontaneous
  Country: US (occurrence: US)
  Receive Date: 20240803
  Receipt Date: 20241020
  Transmission Date: 20250115
  Serious: No
  Sender: SANOFI AVENTIS
  Company Number: US-SANOFI-02155638

PATIENT
  Age: 17 Year
  Sex: Female
  Weight: 57.3 kg

DRUGS (1)
  1. DUPIXENT [Suspect]
     Active Substance: DUPILUMAB
     Indication: Eosinophilic oesophagitis
     Dosage: QOW
     Dates: start: 20240702

REACTIONS (4)
  - Injection site urticaria [Unknown]
  - Panic attack [Recovered/Resolved]
  - Stress [Unknown]
  - Injection site swelling [Recovered/Resolved]

NARRATIVE: CASE EVENT DATE: 20240702
